FAERS Safety Report 14649611 (Version 1)
Quarter: 2018Q1

REPORT INFORMATION
  Report Type: Spontaneous
  Country: CN (occurrence: CN)
  Receive Date: 20180316
  Receipt Date: 20180316
  Transmission Date: 20180509
  Serious: Yes (Other)
  Sender: FDA-Public Use
  Company Number: CN-009507513-1803CHN004454

PATIENT
  Age: 64 Year
  Sex: Male

DRUGS (13)
  1. IMIPENEM AND CILASTATIN [Suspect]
     Active Substance: CILASTATIN SODIUM\IMIPENEM
     Indication: KLEBSIELLA INFECTION
  2. TIGECYCLINE. [Suspect]
     Active Substance: TIGECYCLINE
     Indication: SEPTIC SHOCK
     Dosage: 50 MG, BID
  3. NOREPINEPHRINE. [Concomitant]
     Active Substance: NOREPINEPHRINE
     Dosage: UNK
  4. IMIPENEM AND CILASTATIN [Suspect]
     Active Substance: CILASTATIN SODIUM\IMIPENEM
     Indication: NECROTISING FASCIITIS
     Dosage: 1 G, QID
  5. TIGECYCLINE. [Suspect]
     Active Substance: TIGECYCLINE
     Indication: NECROTISING FASCIITIS
  6. TIGECYCLINE. [Suspect]
     Active Substance: TIGECYCLINE
     Indication: AEROMONAS INFECTION
  7. TIGECYCLINE. [Suspect]
     Active Substance: TIGECYCLINE
     Indication: KLEBSIELLA INFECTION
  8. MILRINONE [Concomitant]
     Active Substance: MILRINONE
     Dosage: UNK
  9. IMIPENEM AND CILASTATIN [Suspect]
     Active Substance: CILASTATIN SODIUM\IMIPENEM
     Indication: SEPTIC SHOCK
  10. IMIPENEM AND CILASTATIN [Suspect]
     Active Substance: CILASTATIN SODIUM\IMIPENEM
     Indication: AEROMONAS INFECTION
  11. AMOXICILLIN (+) CLAVULANATE POTASSIUM [Concomitant]
     Active Substance: AMOXICILLIN\CLAVULANATE POTASSIUM
     Dosage: 4 G, QID
  12. CLINDAMYCIN. [Concomitant]
     Active Substance: CLINDAMYCIN
     Dosage: 600 MG, TID
  13. SODIUM CHLORIDE. [Concomitant]
     Active Substance: SODIUM CHLORIDE
     Dosage: UNK

REACTIONS (1)
  - Drug ineffective [Recovered/Resolved]
